FAERS Safety Report 5672847-5 (Version None)
Quarter: 2008Q1

REPORT INFORMATION
  Report Type: 
  Country: None (occurrence: None)
  Receive Date: 20080317
  Receipt Date: 20080303
  Transmission Date: 20080703
  Serious: Yes (Hospitalization)
  Sender: FDA-Public Use
  Company Number: 2007BI024619

PATIENT
  Age: 66 Year
  Sex: Female

DRUGS (7)
  1. AVONEX [Suspect]
     Indication: MULTIPLE SCLEROSIS
     Dosage: 30 UG;QW;IM
     Route: 030
     Dates: start: 20060601
  2. LOPRESSOR [Concomitant]
  3. SOTALOL [Concomitant]
  4. ASPIRIN [Concomitant]
  5. TAPAZOLE [Concomitant]
  6. HYDROCHLOROTHIAZIDE [Concomitant]
  7. POTASSIUM CHLORIDE [Concomitant]

REACTIONS (4)
  - ATRIAL FIBRILLATION [None]
  - BASEDOW'S DISEASE [None]
  - HYPERTHYROIDISM [None]
  - RASH [None]
